FAERS Safety Report 7117861-8 (Version None)
Quarter: 2010Q4

REPORT INFORMATION
  Report Type: 
  Country: None (occurrence: None)
  Receive Date: 20101118
  Receipt Date: 20101118
  Transmission Date: 20110411
  Serious: Yes (Death)
  Sender: FDA-Public Use
  Company Number: None

PATIENT
  Sex: Male
  Weight: 112.7 kg

DRUGS (1)
  1. CYMBALTA [Suspect]
     Indication: ANXIETY
     Dosage: 60 MG ONCE DAILY BY MOUTH
     Route: 048
     Dates: start: 20091022, end: 20100920

REACTIONS (3)
  - ANXIETY [None]
  - COMPLETED SUICIDE [None]
  - SUICIDAL IDEATION [None]
